FAERS Safety Report 10384081 (Version 2)
Quarter: 2015Q1

REPORT INFORMATION
  Report Type: Spontaneous
  Country: GB (occurrence: GB)
  Receive Date: 20140814
  Receipt Date: 20150205
  Transmission Date: 20150720
  Serious: Yes (Disabling, Other)
  Sender: FDA-Public Use
  Company Number: GB-BAYER-2014-117790

PATIENT
  Age: 40 Year
  Sex: Female
  Weight: 92.87 kg

DRUGS (2)
  1. MIRENA [Suspect]
     Active Substance: LEVONORGESTREL
     Indication: CONTRACEPTION
     Dosage: 20 MCG/24HR, CONT
     Route: 015
     Dates: start: 20140611, end: 20140721
  2. CETIRIZINE [Concomitant]
     Active Substance: CETIRIZINE HYDROCHLORIDE

REACTIONS (14)
  - Panic reaction [Unknown]
  - Paraesthesia [Unknown]
  - Tendon pain [Recovering/Resolving]
  - Abnormal weight gain [Unknown]
  - Anxiety [Unknown]
  - Arthralgia [Recovering/Resolving]
  - Muscle spasms [Unknown]
  - Hypoaesthesia [Recovering/Resolving]
  - Vaginal haemorrhage [Recovered/Resolved]
  - Alopecia [Unknown]
  - Furuncle [Unknown]
  - Fatigue [Unknown]
  - Joint stiffness [Recovering/Resolving]
  - Joint crepitation [Unknown]

NARRATIVE: CASE EVENT DATE: 20140612
